FAERS Safety Report 7431140-0 (Version None)
Quarter: 2011Q2

REPORT INFORMATION
  Report Type: 
  Country: None (occurrence: None)
  Receive Date: 20110421
  Receipt Date: 20110406
  Transmission Date: 20111010
  Serious: Yes (Hospitalization)
  Sender: FDA-Public Use
  Company Number: IT-BAYER-2011-030036

PATIENT
  Sex: Female

DRUGS (2)
  1. PARACETAMOL [Suspect]
     Indication: INFLUENZA
     Dosage: UNK
     Dates: start: 20110115, end: 20110121
  2. IBUPROFEN [Suspect]
     Dosage: DAILY DOSE 600 MG
     Route: 048
     Dates: start: 20110115, end: 20110129

REACTIONS (2)
  - HEPATITIS CHOLESTATIC [None]
  - HEPATOCELLULAR INJURY [None]
